FAERS Safety Report 13672318 (Version 1)
Quarter: 2017Q2

REPORT INFORMATION
  Report Type: Spontaneous
  Country: US (occurrence: US)
  Receive Date: 20170620
  Receipt Date: 20170620
  Transmission Date: 20170830
  Serious: No
  Sender: FDA-Public Use
  Company Number: None

PATIENT
  Age: 59 Year
  Sex: Male
  Weight: 81 kg

DRUGS (10)
  1. DULOXETINE. [Suspect]
     Active Substance: DULOXETINE
  2. LUPRON [Concomitant]
     Active Substance: LEUPROLIDE ACETATE
  3. MORPHINE SULFATE SR [Concomitant]
     Active Substance: MORPHINE SULFATE
  4. VITAMIN D3 [Concomitant]
     Active Substance: CHOLECALCIFEROL
  5. GABAPENTIN. [Suspect]
     Active Substance: GABAPENTIN
     Indication: BACK PAIN
  6. TIZANID [Suspect]
     Active Substance: UNSPECIFIED INGREDIENT
  7. ORPHENADRINE [Concomitant]
     Active Substance: ORPHENADRINE
  8. ALPRAZOLAM. [Concomitant]
     Active Substance: ALPRAZOLAM
  9. ATENOLOL. [Concomitant]
     Active Substance: ATENOLOL
  10. BICALUTAMIDE. [Concomitant]
     Active Substance: BICALUTAMIDE

REACTIONS (3)
  - Dizziness [None]
  - Disorientation [None]
  - Gait disturbance [None]

NARRATIVE: CASE EVENT DATE: 20170510
